FAERS Safety Report 8601312-8 (Version None)
Quarter: 2012Q3

REPORT INFORMATION
  Report Type: 
  Country: None (occurrence: None)
  Receive Date: 20120817
  Receipt Date: 20120816
  Transmission Date: 20120928
  Serious: Yes (Other)
  Sender: FDA-Public Use
  Company Number: BE-COVIDIEN/TYCO HEALTHCARE/MALLINCKRODT-T201202974

PATIENT
  Sex: Male
  Weight: 140 kg

DRUGS (2)
  1. IODINE I-131 DIAGNOSTIC SOLUTION [Suspect]
     Indication: NODULE
     Dosage: 1480 MBQ, SINGLE
     Route: 048
     Dates: start: 20120516, end: 20120516
  2. L-THYROXINE                        /00068001/ [Concomitant]
     Dosage: UNK
     Dates: start: 20120101

REACTIONS (3)
  - HYPOTHYROIDISM [None]
  - INCORRECT DOSE ADMINISTERED [None]
  - MEDICATION ERROR [None]
